FAERS Safety Report 4823645-3 (Version None)
Quarter: 2005Q4

REPORT INFORMATION
  Report Type: 
  Country: None (occurrence: None)
  Receive Date: 20051109
  Receipt Date: 20051024
  Transmission Date: 20060501
  Serious: Yes (Other)
  Sender: FDA-Public Use
  Company Number: GB-GLAXOSMITHKLINE-B0398133A

PATIENT
  Age: 34 Year
  Sex: Female

DRUGS (2)
  1. ZYBAN [Suspect]
     Indication: SMOKING CESSATION THERAPY
     Route: 048
     Dates: start: 20050208
  2. NO CONCURRENT MEDICATION [Concomitant]

REACTIONS (3)
  - DEPRESSION [None]
  - PERSONALITY CHANGE [None]
  - SUICIDAL IDEATION [None]
